FAERS Safety Report 14739287 (Version 1)
Quarter: 2018Q2

REPORT INFORMATION
  Report Type: Spontaneous
  Country: GB (occurrence: GB)
  Receive Date: 20180410
  Receipt Date: 20180410
  Transmission Date: 20180711
  Serious: Yes (Hospitalization)
  Sender: FDA-Public Use
  Company Number: GB-TEVA-2018-GB-880147

PATIENT
  Age: 89 Year
  Sex: Female

DRUGS (5)
  1. CITALOPRAM [Concomitant]
     Active Substance: CITALOPRAM HYDROBROMIDE
     Dosage: 2.5 MILLIGRAM DAILY;
     Route: 065
  2. DOCUSATE [Concomitant]
     Active Substance: DOCUSATE
     Dosage: 400 MILLIGRAM DAILY;
     Route: 065
  3. DIGOXIN. [Concomitant]
     Active Substance: DIGOXIN
     Dosage: 62.5 MILLIGRAM DAILY;
     Route: 065
  4. WARFARIN [Suspect]
     Active Substance: WARFARIN
     Route: 065
  5. BENDROFLUMETHIAZIDE [Concomitant]
     Active Substance: BENDROFLUMETHIAZIDE
     Dosage: 2.5 MILLIGRAM DAILY;
     Route: 065

REACTIONS (1)
  - Haemorrhoidal haemorrhage [Unknown]
